FAERS Safety Report 7256882-1 (Version None)
Quarter: 2011Q1

REPORT INFORMATION
  Report Type: 
  Country: None (occurrence: None)
  Receive Date: 20110129
  Receipt Date: 20100621
  Transmission Date: 20110831
  Serious: No
  Sender: FDA-Public Use
  Company Number: US-ABBOTT-10P-163-0652593-00

PATIENT
  Age: 45 Year
  Sex: Female

DRUGS (11)
  1. SYNTHROID [Concomitant]
     Indication: HYPOTHYROIDISM
  2. SINGULAIR [Concomitant]
     Indication: HYPERSENSITIVITY
  3. ZOMIG [Concomitant]
     Indication: MIGRAINE
  4. MOTRIN [Concomitant]
     Indication: RHEUMATOID ARTHRITIS
  5. BECONASE [Concomitant]
     Indication: HYPERSENSITIVITY
     Route: 045
  6. HUMIRA [Suspect]
     Indication: RHEUMATOID ARTHRITIS
     Dates: start: 20100420
  7. NEXIUM [Concomitant]
     Indication: GASTROOESOPHAGEAL REFLUX DISEASE
  8. HYDROCHLOROTHIAZIDE [Concomitant]
     Indication: MENIERE'S DISEASE
  9. PREDNISONE [Concomitant]
     Indication: RHEUMATOID ARTHRITIS
  10. CALCIUM W/VITAMIN D [Concomitant]
     Indication: RHEUMATOID ARTHRITIS
  11. POSTASSIUM [Concomitant]
     Indication: MINERAL SUPPLEMENTATION

REACTIONS (4)
  - INAPPROPRIATE AFFECT [None]
  - ABNORMAL BEHAVIOUR [None]
  - STRESS [None]
  - ILL-DEFINED DISORDER [None]
